FAERS Safety Report 12247179 (Version 3)
Quarter: 2017Q2

REPORT INFORMATION
  Report Type: Report from Study
  Country: CA (occurrence: CA)
  Receive Date: 20160407
  Receipt Date: 20170421
  Transmission Date: 20170830
  Serious: Yes (Other)
  Sender: FDA-Public Use
  Company Number: PHHY2016CA044363

PATIENT
  Age: 41 Year

DRUGS (1)
  1. GILENYA [Suspect]
     Active Substance: FINGOLIMOD HYDROCHLORIDE
     Indication: MULTIPLE SCLEROSIS
     Dosage: 0.5 MG, QD
     Route: 048

REACTIONS (15)
  - Hyperhidrosis [Unknown]
  - Colitis ulcerative [Not Recovered/Not Resolved]
  - Abdominal pain upper [Unknown]
  - Crohn^s disease [Not Recovered/Not Resolved]
  - Fatigue [Unknown]
  - Hypoaesthesia [Unknown]
  - Vomiting [Unknown]
  - Abdominal pain upper [Recovered/Resolved]
  - Inflammatory bowel disease [Not Recovered/Not Resolved]
  - Pyrexia [Unknown]
  - Diarrhoea [Unknown]
  - Back pain [Recovered/Resolved]
  - Hepatotoxicity [Unknown]
  - Mouth ulceration [Recovered/Resolved]
  - Breast disorder [Recovered/Resolved]

NARRATIVE: CASE EVENT DATE: 2014
